FAERS Safety Report 4761453-2 (Version None)
Quarter: 2005Q3

REPORT INFORMATION
  Report Type: 
  Country: None (occurrence: None)
  Receive Date: 20050906
  Receipt Date: 20050826
  Transmission Date: 20060218
  Serious: Yes (Other)
  Sender: FDA-Public Use
  Company Number: US-SANOFI-SYNTHELABO-F03200500120

PATIENT
  Sex: Female

DRUGS (4)
  1. ELOXATIN [Suspect]
     Indication: COLORECTAL CANCER
     Route: 042
  2. CETUXIMAB [Suspect]
     Indication: COLORECTAL CANCER
     Route: 042
     Dates: start: 20050815
  3. RADIATION [Suspect]
     Dosage: UNK
     Route: 050
  4. CAPECITABINE [Suspect]
     Dosage: 1500 MG TWICE PER DAY MONDAY THROUGH FRIDAY
     Route: 048
     Dates: start: 20050815

REACTIONS (1)
  - PAIN [None]
